FAERS Safety Report 6193369-1 (Version None)
Quarter: 2009Q2

REPORT INFORMATION
  Report Type: 
  Country: None (occurrence: None)
  Receive Date: 20090518
  Receipt Date: 20090507
  Transmission Date: 20091009
  Serious: Yes (Other)
  Sender: FDA-Public Use
  Company Number: US-JNJFOC-20090502295

PATIENT

DRUGS (8)
  1. DOXIL [Suspect]
     Indication: MULTIPLE MYELOMA
     Route: 042
  2. VELCADE [Suspect]
     Indication: MULTIPLE MYELOMA
     Route: 042
  3. ZOMETA [Suspect]
     Indication: MULTIPLE MYELOMA
     Route: 065
  4. BENADRYL [Concomitant]
     Dosage: GIVEN AT LAST CYCLE (5 OR 6)
     Route: 065
  5. BENADRYL [Concomitant]
     Indication: PREMEDICATION
     Dosage: WITH CYCLES 2 TO 4
     Route: 065
  6. DECADRON [Concomitant]
     Dosage: GIVEN AT LAST CYCLE (5 OR 6)
     Route: 065
  7. DECADRON [Concomitant]
     Dosage: GIVEN AT LAST CYCLE (5 OR 6)
     Route: 065
  8. DECADRON [Concomitant]
     Indication: PREMEDICATION
     Dosage: GIVEN AT CYCLE 2 TO 4
     Route: 065

REACTIONS (4)
  - FLUSHING [None]
  - GLAUCOMA [None]
  - HYPOTENSION [None]
  - INFUSION RELATED REACTION [None]
